FAERS Safety Report 19060011 (Version 1)
Quarter: 2021Q1

REPORT INFORMATION
  Report Type: Spontaneous
  Country: DE (occurrence: DE)
  Receive Date: 20210326
  Receipt Date: 20210326
  Transmission Date: 20210420
  Serious: Yes (Death, Hospitalization)
  Sender: FDA-Public Use
  Company Number: DE-TEVA-2021-DE-1893358

PATIENT
  Age: 81 Year
  Sex: Female

DRUGS (17)
  1. ACETYLCYSTEINE. [Concomitant]
     Active Substance: ACETYLCYSTEINE
     Dosage: 1200 MILLIGRAM DAILY; 1?1?0?0
  2. SALBUTAMOL [Concomitant]
     Active Substance: ALBUTEROL
     Dosage: 15 MILLIGRAM DAILY; 1?1?1?0, INHALANT
     Route: 055
  3. METAMIZOL [Concomitant]
     Active Substance: METAMIZOLE SODIUM
     Dosage: 90 GTT DAILY; 30?30?30?0, DROPS
  4. ATROVENT [Concomitant]
     Active Substance: IPRATROPIUM BROMIDE
     Dosage: 60 ML DAILY; 1?1?1?0:INHALANT
     Route: 055
  5. CARVEDILOL. [Concomitant]
     Active Substance: CARVEDILOL
     Dosage: 4 DOSAGE FORMS DAILY; 12.5 MG, 2?0?0?2
  6. BERODUAL DOSIER?AEROSOL [Concomitant]
     Dosage: 50 | 21 UG, REQUIREMENT, METERED DOSE INHALER
     Route: 055
  7. TORASEMID [Concomitant]
     Active Substance: TORSEMIDE
     Dosage: 10 MILLIGRAM DAILY; 1?0?0?0
  8. PREDNISOLONE. [Suspect]
     Active Substance: PREDNISOLONE
     Dosage: 3?0?1?0
  9. URAPIDIL [Concomitant]
     Active Substance: URAPIDIL
     Dosage: 180 MILLIGRAM DAILY; 1?1?0?1
  10. MOXONIDIN [Concomitant]
     Active Substance: MOXONIDINE
     Dosage: .4 MILLIGRAM DAILY; 0?0?1?0, SACHET / POWDER
  11. VALSARTAN. [Concomitant]
     Active Substance: VALSARTAN
     Dosage: 320 MILLIGRAM DAILY; 1?0?0?1
  12. ASS 100 [Concomitant]
     Active Substance: ASPIRIN
     Dosage: 100 MILLIGRAM DAILY; 0?1?0?0
  13. NITRENDIPIN [Concomitant]
     Active Substance: NITRENDIPINE
     Dosage: 40 MILLIGRAM DAILY; 1?0?0?1
  14. NEPRESOL [Concomitant]
     Dosage: 50 MILLIGRAM DAILY; 1?0?0?1
  15. PANTOPRAZOL [Concomitant]
     Active Substance: PANTOPRAZOLE SODIUM
     Dosage: 40 MILLIGRAM DAILY; 1?0?0?0
  16. MOVICOL [Concomitant]
     Active Substance: POLYETHYLENE GLYCOL 3350\POTASSIUM CHLORIDE\SODIUM BICARBONATE\SODIUM CHLORIDE
     Dosage: 1 DOSAGE FORMS DAILY; 1?0?0?0
  17. SPIRONOLACTON [Concomitant]
     Active Substance: SPIRONOLACTONE
     Dosage: 50 MILLIGRAM DAILY; 1?0?0?0

REACTIONS (2)
  - Product prescribing error [Unknown]
  - Dyspnoea [Unknown]

NARRATIVE: CASE EVENT DATE: 20201209
